FAERS Safety Report 11663042 (Version 1)
Quarter: 2015Q4

REPORT INFORMATION
  Report Type: Spontaneous
  Country: US (occurrence: US)
  Receive Date: 20151027
  Receipt Date: 20151027
  Transmission Date: 20160304
  Serious: No
  Sender: FDA-Public Use
  Company Number: US-MEDA-2010070049

PATIENT
  Age: 53 Year
  Sex: Female

DRUGS (4)
  1. KADIAN [Suspect]
     Active Substance: MORPHINE SULFATE
     Indication: PAIN
     Route: 048
     Dates: end: 20100718
  2. ONSOLIS [Suspect]
     Active Substance: FENTANYL CITRATE
     Indication: CANCER PAIN
     Route: 002
  3. ACTIQ [Suspect]
     Active Substance: FENTANYL CITRATE
     Indication: PAIN
  4. METHADONE [Concomitant]
     Active Substance: METHADONE HYDROCHLORIDE
     Indication: PAIN
     Dosage: TITRATE UP TO 10 MG
     Route: 048
     Dates: start: 201007

REACTIONS (2)
  - Intercepted drug dispensing error [Recovered/Resolved]
  - Intercepted medication error [Recovered/Resolved]

NARRATIVE: CASE EVENT DATE: 20100720
